FAERS Safety Report 6444528-1 (Version None)
Quarter: 2009Q4

REPORT INFORMATION
  Report Type: 
  Country: None (occurrence: None)
  Receive Date: 20091117
  Receipt Date: 20091117
  Transmission Date: 20100525
  Serious: Yes (Other)
  Sender: FDA-Public Use
  Company Number: None

PATIENT
  Age: 66 Year
  Sex: Male
  Weight: 81.6475 kg

DRUGS (2)
  1. ZETIA [Suspect]
     Indication: CARDIAC DISORDER
     Dosage: 10MG DAILY PO
     Route: 048
     Dates: start: 20090101
  2. VYTORIN [Suspect]
     Dosage: PO
     Route: 048
     Dates: start: 20090101

REACTIONS (5)
  - EMOTIONAL DISORDER [None]
  - MOVEMENT DISORDER [None]
  - MUSCLE DISORDER [None]
  - NIGHTMARE [None]
  - PAIN [None]
